FAERS Safety Report 8937207 (Version 2)
Quarter: 2013Q1

REPORT INFORMATION
  Report Type: Spontaneous
  Country: US (occurrence: None)
  Receive Date: 20121121
  Receipt Date: 20121130
  Transmission Date: 20140127
  Serious: Yes (Hospitalization)
  Sender: FDA-Public Use
  Company Number: UTC-025582

PATIENT
  Age: 68 Year
  Sex: Female
  Weight: 81.81 kg

DRUGS (3)
  1. REMODULIN (10 MILLIGRAM/MILLILITERS, INJECTION FOR INFUSION) (TREPROSTINIL SODIUM) [Suspect]
     Indication: COR PULMONALE CHRONIC
     Dosage: (0.071 UG/KG, 1 IN 1 MIN)
     Route: 058
     Dates: start: 20070710, end: 20121110
  2. COUMADIN (WARFARIN SODIUM) [Concomitant]
  3. REVATIO (SILDENAFIL CITRATE) [Concomitant]

REACTIONS (9)
  - Infusion site extravasation [None]
  - Asthenia [None]
  - Vomiting [None]
  - Headache [None]
  - Nausea [None]
  - Dizziness [None]
  - Drug dose omission [None]
  - Migraine [None]
  - Diarrhoea [None]
